FAERS Safety Report 7773752-0 (Version None)
Quarter: 2011Q3

REPORT INFORMATION
  Report Type: 
  Country: None (occurrence: None)
  Receive Date: 20110923
  Receipt Date: 20110919
  Transmission Date: 20111222
  Serious: Yes (Other)
  Sender: FDA-Public Use
  Company Number: US-CEPHALON-US024496

PATIENT
  Sex: Female
  Weight: 99 kg

DRUGS (13)
  1. FENTORA [Suspect]
     Indication: BACK PAIN
     Dosage: QID
     Route: 002
     Dates: start: 20060201, end: 20060401
  2. KADIAN [Concomitant]
     Indication: BACK PAIN
     Route: 048
     Dates: start: 20060201
  3. REMERON [Concomitant]
     Indication: DEPRESSION
     Route: 048
     Dates: start: 20030801
  4. FENTORA [Suspect]
     Dosage: QID
     Route: 002
     Dates: start: 20060401, end: 20071201
  5. FENTORA [Suspect]
     Dosage: QID
     Route: 002
     Dates: start: 20071201
  6. LASIX [Concomitant]
     Indication: FLUID RETENTION
     Dosage: BID
     Route: 048
     Dates: start: 20010801
  7. XANAX [Concomitant]
     Indication: ANXIETY
     Dosage: QD
     Route: 048
  8. ZANTAC [Concomitant]
     Indication: GASTROOESOPHAGEAL REFLUX DISEASE
     Route: 048
     Dates: start: 19980801
  9. NEXIUM [Concomitant]
     Indication: GASTROOESOPHAGEAL REFLUX DISEASE
     Route: 048
     Dates: start: 20030801
  10. PRILOSEC [Concomitant]
     Indication: GASTROOESOPHAGEAL REFLUX DISEASE
     Dosage: BID
     Route: 048
     Dates: start: 19980801
  11. POTASSIUM [Concomitant]
     Indication: SUPPLEMENTATION THERAPY
     Route: 048
     Dates: start: 20010801
  12. RISPERDAL [Concomitant]
     Indication: ANXIETY
     Dosage: QD
     Route: 048
  13. SOMA [Concomitant]
     Indication: MUSCLE DISORDER
     Route: 048

REACTIONS (5)
  - DRUG PRESCRIBING ERROR [None]
  - DENTAL CARIES [None]
  - SENSITIVITY OF TEETH [None]
  - DRUG INEFFECTIVE FOR UNAPPROVED INDICATION [None]
  - TOOTHACHE [None]
